FAERS Safety Report 4804867-4 (Version None)
Quarter: 2005Q4

REPORT INFORMATION
  Report Type: 
  Country: None (occurrence: None)
  Receive Date: 20051020
  Receipt Date: 20050919
  Transmission Date: 20060501
  Serious: Yes (Hospitalization)
  Sender: FDA-Public Use
  Company Number: 2005UW13916

PATIENT
  Age: 86 Year
  Sex: Female

DRUGS (3)
  1. FASLODEX [Suspect]
     Route: 030
  2. DIGOXIN [Interacting]
  3. ECOTRIN [Concomitant]

REACTIONS (2)
  - DRUG INTERACTION [None]
  - THERAPEUTIC AGENT TOXICITY [None]
